FAERS Safety Report 6723051-0 (Version None)
Quarter: 2010Q2

REPORT INFORMATION
  Report Type: 
  Country: None (occurrence: None)
  Receive Date: 20100513
  Receipt Date: 20100506
  Transmission Date: 20101027
  Serious: No
  Sender: FDA-Public Use
  Company Number: US-BIOGENIDEC-2010BI015161

PATIENT
  Age: 44 Year
  Sex: Female

DRUGS (1)
  1. AVONEX [Suspect]
     Indication: MULTIPLE SCLEROSIS
     Route: 030
     Dates: start: 20090101

REACTIONS (6)
  - ABASIA [None]
  - INFLUENZA LIKE ILLNESS [None]
  - INJECTION SITE MASS [None]
  - MOBILITY DECREASED [None]
  - MUSCLE SPASMS [None]
  - PAIN IN EXTREMITY [None]
